FAERS Safety Report 16012900 (Version 2)
Quarter: 2019Q4

REPORT INFORMATION
  Report Type: Spontaneous
  Country: JP (occurrence: JP)
  Receive Date: 20190227
  Receipt Date: 20191120
  Transmission Date: 20200122
  Serious: Yes (Hospitalization)
  Sender: FDA-Public Use
  Company Number: JP-EISAI MEDICAL RESEARCH-EC-2019-052299

PATIENT
  Age: 73 Year
  Sex: Male

DRUGS (1)
  1. LENVIMA [Suspect]
     Active Substance: LENVATINIB
     Indication: HEPATOCELLULAR CARCINOMA
     Route: 048
     Dates: start: 20190129, end: 20190227

REACTIONS (4)
  - Ascites [Unknown]
  - Cholecystitis acute [Unknown]
  - Palmar erythema [Unknown]
  - Decreased appetite [Unknown]

NARRATIVE: CASE EVENT DATE: 201902
